FAERS Safety Report 5121066-X (Version None)
Quarter: 2006Q4

REPORT INFORMATION
  Report Type: 
  Country: None (occurrence: None)
  Receive Date: 20061002
  Receipt Date: 20060913
  Transmission Date: 20070319
  Serious: Yes (Hospitalization)
  Sender: FDA-Public Use
  Company Number: S06-UKI-03816-01

PATIENT
  Sex: Female

DRUGS (2)
  1. CITALOPRAM HYDROBROMIDE [Suspect]
     Dates: start: 20060913
  2. AMITRIPTYLINE HCL [Suspect]
     Dates: end: 20060913

REACTIONS (1)
  - OVERDOSE [None]
